FAERS Safety Report 9449783 (Version 1)
Quarter: 2013Q3

REPORT INFORMATION
  Report Type: Spontaneous
  Country: US (occurrence: US)
  Receive Date: 20130809
  Receipt Date: 20130809
  Transmission Date: 20140515
  Serious: Yes (Other)
  Sender: FDA-Public Use
  Company Number: US-AMGEN-USASP2013054835

PATIENT
  Sex: Female

DRUGS (2)
  1. PROLIA [Suspect]
     Indication: OSTEOPOROSIS
     Dosage: UNK
     Route: 065
  2. HERCEPTIN [Concomitant]
     Indication: BREAST CANCER
     Dosage: UNK
     Dates: start: 201302

REACTIONS (2)
  - Breast cancer [Unknown]
  - Pain in extremity [Recovering/Resolving]
